FAERS Safety Report 8354112-0 (Version None)
Quarter: 2012Q2

REPORT INFORMATION
  Report Type: 
  Country: None (occurrence: None)
  Receive Date: 20120511
  Receipt Date: 20120505
  Transmission Date: 20120825
  Serious: Yes (Other)
  Sender: FDA-Public Use
  Company Number: US-BAYER-2012-046013

PATIENT

DRUGS (1)
  1. NAPROXEN SODIUM [Suspect]
     Indication: PAIN
     Route: 048

REACTIONS (5)
  - SLEEP DISORDER [None]
  - PRURITUS [None]
  - RASH GENERALISED [None]
  - PARAESTHESIA [None]
  - HYPERSENSITIVITY [None]
